FAERS Safety Report 10382639 (Version 3)
Quarter: 2014Q4

REPORT INFORMATION
  Report Type: Spontaneous
  Country: JP (occurrence: JP)
  Receive Date: 20140813
  Receipt Date: 20141017
  Transmission Date: 20150528
  Serious: Yes (Death, Life-Threatening, Hospitalization, Disabling, Other)
  Sender: FDA-Public Use
  Company Number: JP-B.I. PHARMACEUTICALS,INC./RIDGEFIELD-2014-BI-34552NB

PATIENT
  Age: 88 Year
  Sex: Female
  Weight: 50 kg

DRUGS (6)
  1. PREMINENT [Concomitant]
     Active Substance: HYDROCHLOROTHIAZIDE\LOSARTAN POTASSIUM
     Indication: HYPERTENSION
     Route: 048
  2. ISOCORONAL R [Concomitant]
     Active Substance: ISOSORBIDE DINITRATE
     Indication: HYPERTENSION
     Dosage: 40 MG
     Route: 048
     Dates: end: 20140706
  3. CARBADOGEN [Concomitant]
     Indication: HYPERTENSION
     Dosage: 2 MG
     Route: 048
     Dates: end: 20140706
  4. CILNIDIPINE [Concomitant]
     Active Substance: CILNIDIPINE
     Indication: HYPERTENSION
     Dosage: 10 MG
     Route: 048
  5. FEBURIC [Concomitant]
     Active Substance: FEBUXOSTAT
     Indication: HYPERURICAEMIA
     Dosage: 10 MG
     Route: 048
  6. PRAZAXA [Suspect]
     Active Substance: DABIGATRAN ETEXILATE MESYLATE
     Indication: ATRIAL FIBRILLATION
     Dosage: 220 MG
     Route: 048
     Dates: end: 20140706

REACTIONS (13)
  - Multi-organ failure [Fatal]
  - Dyspnoea [Fatal]
  - Activities of daily living impaired [Fatal]
  - Pulmonary oedema [Unknown]
  - Faeces discoloured [Fatal]
  - Decreased appetite [Fatal]
  - Cardiac failure high output [Fatal]
  - Dehydration [Unknown]
  - Pulmonary congestion [Fatal]
  - Coagulopathy [Fatal]
  - Renal impairment [Fatal]
  - Altered state of consciousness [Fatal]
  - Upper gastrointestinal haemorrhage [Recovered/Resolved with Sequelae]

NARRATIVE: CASE EVENT DATE: 201407
